FAERS Safety Report 15106999 (Version 2)
Quarter: 2018Q3

REPORT INFORMATION
  Report Type: Spontaneous
  Country: AT (occurrence: AT)
  Receive Date: 20180704
  Receipt Date: 20180716
  Transmission Date: 20181010
  Serious: Yes (Other)
  Sender: FDA-Public Use
  Company Number: AT-TEVA-2018-AT-920755

PATIENT
  Age: 50 Year
  Sex: Female

DRUGS (1)
  1. MODASOMIL [Suspect]
     Active Substance: MODAFINIL
     Route: 065

REACTIONS (9)
  - Diabetes mellitus [Not Recovered/Not Resolved]
  - Compulsive shopping [Not Recovered/Not Resolved]
  - Drug dependence [Not Recovered/Not Resolved]
  - Withdrawal syndrome [Recovering/Resolving]
  - Dependence [Not Recovered/Not Resolved]
  - Somnolence [Not Recovered/Not Resolved]
  - Tension [Recovering/Resolving]
  - Panic attack [Recovering/Resolving]
  - Mood altered [Recovering/Resolving]
